FAERS Safety Report 6544473-7 (Version None)
Quarter: 2010Q1

REPORT INFORMATION
  Report Type: 
  Country: None (occurrence: None)
  Receive Date: 20100120
  Receipt Date: 20100120
  Transmission Date: 20100710
  Serious: Yes (Death)
  Sender: FDA-Public Use
  Company Number: None

PATIENT
  Age: 48 Year
  Sex: Male
  Weight: 77.1115 kg

DRUGS (1)
  1. RITUXAN [Suspect]
     Indication: LYMPHOMA
     Dates: start: 20091208, end: 20091208

REACTIONS (4)
  - INTESTINAL PERFORATION [None]
  - RENAL FAILURE [None]
  - SEPSIS [None]
  - VOMITING [None]
